FAERS Safety Report 15272516 (Version 1)
Quarter: 2018Q3

REPORT INFORMATION
  Report Type: Spontaneous
  Country: JP (occurrence: JP)
  Receive Date: 20180813
  Receipt Date: 20180813
  Transmission Date: 20181010
  Serious: Yes (Other)
  Sender: FDA-Public Use
  Company Number: JP-SAOL THERAPEUTICS-2018SAO00928

PATIENT
  Age: 4 Year
  Sex: Female

DRUGS (6)
  1. PREDNISLONE [Concomitant]
  2. MYCOPHENOLATE MOFETIL. [Concomitant]
     Active Substance: MYCOPHENOLATE MOFETIL
  3. HEPATITIS B IMMUNE GLOBULIN [Suspect]
     Active Substance: HUMAN HEPATITIS B VIRUS IMMUNE GLOBULIN
     Indication: PROPHYLAXIS
     Dosage: 200 IU/KG, \DAY
     Route: 042
  4. STEROID LOW DOSE [Concomitant]
  5. HEPATITIS B IMMUNE GLOBULIN [Suspect]
     Active Substance: HUMAN HEPATITIS B VIRUS IMMUNE GLOBULIN
     Dosage: 50?200 IU/G, AS NEEDED
     Route: 042
  6. TACROLIMUS. [Concomitant]
     Active Substance: TACROLIMUS

REACTIONS (2)
  - Hepatitis B [Recovered/Resolved]
  - Drug ineffective [Not Recovered/Not Resolved]
